FAERS Safety Report 18588877 (Version 1)
Quarter: 2020Q4

REPORT INFORMATION
  Report Type: Report from Study
  Country: None (occurrence: DE)
  Receive Date: 20201207
  Receipt Date: 20201207
  Transmission Date: 20210114
  Serious: Yes (Other)
  Sender: FDA-Public Use
  Company Number: DE-ABBVIE-20K-062-3681580-00

PATIENT
  Age: 77 Year
  Sex: Female

DRUGS (1)
  1. IBRUTINIB [Suspect]
     Active Substance: IBRUTINIB
     Indication: CHRONIC LYMPHOCYTIC LEUKAEMIA
     Route: 048
     Dates: start: 20190605

REACTIONS (3)
  - Bronchitis [Recovered/Resolved]
  - Pleurisy [Recovering/Resolving]
  - Palindromic rheumatism [Not Recovered/Not Resolved]

NARRATIVE: CASE EVENT DATE: 20190815
